FAERS Safety Report 14870643 (Version 3)
Quarter: 2018Q4

REPORT INFORMATION
  Report Type: Report from Study
  Country: FR (occurrence: FR)
  Receive Date: 20180509
  Receipt Date: 20181009
  Transmission Date: 20190204
  Serious: Yes (Hospitalization)
  Sender: FDA-Public Use
  Company Number: FR-IPSEN BIOPHARMACEUTICALS, INC.-2018-06366

PATIENT
  Age: 11 Year
  Sex: Male
  Weight: 23 kg

DRUGS (5)
  1. ASPEGIC (ASPIRIN) [Concomitant]
     Active Substance: ASPIRIN
  2. GENOTONORM [Concomitant]
     Active Substance: SOMATROPIN
  3. INCRELEX [Suspect]
     Active Substance: MECASERMIN
     Indication: PRIMARY INSULIN LIKE GROWTH FACTOR-1 DEFICIENCY
     Route: 065
     Dates: start: 20140424, end: 2014
  4. INCRELEX [Suspect]
     Active Substance: MECASERMIN
     Route: 065
     Dates: start: 2014
  5. GENOTONORM [Concomitant]
     Active Substance: SOMATROPIN

REACTIONS (1)
  - Aural polyp [Recovered/Resolved]

NARRATIVE: CASE EVENT DATE: 20140515
